FAERS Safety Report 20784516 (Version 3)
Quarter: 2022Q3

REPORT INFORMATION
  Report Type: Spontaneous
  Country: US (occurrence: US)
  Receive Date: 20220504
  Receipt Date: 20220704
  Transmission Date: 20221027
  Serious: Yes (Other)
  Sender: FDA-Public Use
  Company Number: US-PFIZER INC-202200625036

PATIENT
  Age: 51 Year
  Sex: Female

DRUGS (2)
  1. IBRANCE [Suspect]
     Active Substance: PALBOCICLIB
     Dosage: 125 MG, CYCLIC (TAKE 1 TABLET DAILY FOR 21 DAYS ON AND 7 DAYS OFF)
     Dates: start: 20220322
  2. LETROZOLE [Concomitant]
     Active Substance: LETROZOLE
     Dosage: UNK

REACTIONS (6)
  - Tumour excision [Unknown]
  - Vomiting [Unknown]
  - Nausea [Not Recovered/Not Resolved]
  - Loss of personal independence in daily activities [Unknown]
  - Diarrhoea [Unknown]
  - White blood cell count decreased [Recovering/Resolving]

NARRATIVE: CASE EVENT DATE: 20220101
